FAERS Safety Report 7824848-6 (Version None)
Quarter: 2011Q4

REPORT INFORMATION
  Report Type: 
  Country: None (occurrence: None)
  Receive Date: 20111019
  Receipt Date: 20110214
  Transmission Date: 20120403
  Serious: No
  Sender: FDA-Public Use
  Company Number: US-BRISTOL-MYERS SQUIBB COMPANY-15548639

PATIENT
  Age: 64 Year
  Sex: Male

DRUGS (1)
  1. AVALIDE [Suspect]
     Dosage: 1 DF=300/12.5 MG ,CUTTING THE 300/12.5 MG TABLET IN HALF

REACTIONS (2)
  - MEDICATION ERROR [None]
  - BLOOD PRESSURE DECREASED [None]
